FAERS Safety Report 4823434-X (Version None)
Quarter: 2005Q4

REPORT INFORMATION
  Report Type: 
  Country: None (occurrence: None)
  Receive Date: 20051107
  Receipt Date: 20051025
  Transmission Date: 20060501
  Serious: Yes (Other)
  Sender: FDA-Public Use
  Company Number: 1314819-2005-00009

PATIENT
  Age: 22 Year
  Sex: Female

DRUGS (1)
  1. CLINDOXYL [Suspect]
     Indication: ACNE
     Dosage: QD 060
     Dates: start: 20051019, end: 20051024

REACTIONS (5)
  - HYPERSENSITIVITY [None]
  - LOCAL SWELLING [None]
  - NASAL OEDEMA [None]
  - PHARYNGEAL OEDEMA [None]
  - SWELLING [None]
